FAERS Safety Report 14409348 (Version 1)
Quarter: 2018Q1

REPORT INFORMATION
  Report Type: Spontaneous
  Country: IT (occurrence: IT)
  Receive Date: 20180119
  Receipt Date: 20180119
  Transmission Date: 20180509
  Serious: Yes (Other)
  Sender: FDA-Public Use
  Company Number: IT-GLAXOSMITHKLINE-IT2018004530

PATIENT
  Age: 52 Year
  Sex: Male

DRUGS (3)
  1. CLENIL [Suspect]
     Active Substance: BECLOMETHASONE DIPROPIONATE
     Indication: BRONCHITIS
     Dosage: 1.6 MG, QD
     Route: 055
     Dates: start: 20170918, end: 20170925
  2. SALBUTAMOL [Suspect]
     Active Substance: ALBUTEROL
     Indication: BRONCHITIS
     Dosage: 3.5 MG, QD
     Route: 055
     Dates: start: 20170918, end: 20170925
  3. KLACID [Suspect]
     Active Substance: CLARITHROMYCIN
     Indication: BRONCHITIS
     Dosage: 500 MG, QD
     Route: 048
     Dates: start: 20170918, end: 20170925

REACTIONS (6)
  - Cough [Recovering/Resolving]
  - Nausea [Recovering/Resolving]
  - Bronchitis [Recovering/Resolving]
  - Aggression [Recovering/Resolving]
  - Tremor [Recovering/Resolving]
  - Chills [Recovering/Resolving]

NARRATIVE: CASE EVENT DATE: 20170918
